FAERS Safety Report 21345920 (Version 2)
Quarter: 2022Q4

REPORT INFORMATION
  Report Type: Report from Study
  Country: TW (occurrence: TW)
  Receive Date: 20220916
  Receipt Date: 20221114
  Transmission Date: 20230113
  Serious: Yes (Death, Other)
  Sender: FDA-Public Use
  Company Number: TW-BoehringerIngelheim-2022-BI-192263

PATIENT
  Age: 75 Year
  Sex: Male
  Weight: 64.8 kg

DRUGS (1)
  1. OFEV [Suspect]
     Active Substance: NINTEDANIB
     Indication: Idiopathic pulmonary fibrosis
     Route: 048
     Dates: start: 20211015, end: 20220821

REACTIONS (3)
  - Idiopathic pulmonary fibrosis [Fatal]
  - Pneumonia [Fatal]
  - Respiratory failure [Fatal]

NARRATIVE: CASE EVENT DATE: 20220701
